FAERS Safety Report 5039897-3 (Version None)
Quarter: 2006Q2

REPORT INFORMATION
  Report Type: 
  Country: None (occurrence: None)
  Receive Date: 20060630
  Receipt Date: 20060529
  Transmission Date: 20061013
  Serious: Yes (Life-Threatening, Hospitalization)
  Sender: FDA-Public Use
  Company Number: PHRM2006FR01678

PATIENT
  Age: 75 Year
  Sex: Female
  Weight: 64 kg

DRUGS (7)
  1. HYPERIUM [Concomitant]
     Indication: HYPERTENSION
     Dosage: UNK, UNK
  2. PRACTAZIN [Concomitant]
     Indication: HYPERTENSION
     Dosage: UNK, UNK
     Dates: start: 20030501
  3. VEINAMITOL [Concomitant]
     Indication: VENOUS INSUFFICIENCY
     Dosage: UNK, UNK
     Dates: start: 20030501
  4. TEMESTA [Concomitant]
     Indication: ANXIETY
  5. TARDYFERON [Concomitant]
     Indication: ANAEMIA
     Dates: start: 20051221, end: 20060101
  6. AUGMENTIN '125' [Suspect]
     Indication: PERITONITIS
  7. GLEEVEC [Suspect]
     Indication: CHRONIC MYELOID LEUKAEMIA
     Dosage: 400 MG DAILY
     Route: 048
     Dates: start: 20030416

REACTIONS (28)
  - ABDOMINAL PAIN [None]
  - ABNORMAL FAECES [None]
  - ALPHA GLOBULIN INCREASED [None]
  - ANAEMIA [None]
  - APPENDICECTOMY [None]
  - ASTHENIA [None]
  - BLOOD ALKALINE PHOSPHATASE INCREASED [None]
  - BLOOD LACTATE DEHYDROGENASE INCREASED [None]
  - BLOOD URIC ACID INCREASED [None]
  - C-REACTIVE PROTEIN INCREASED [None]
  - COLON CANCER STAGE III [None]
  - DIARRHOEA [None]
  - FLATULENCE [None]
  - GAMMA-GLUTAMYLTRANSFERASE INCREASED [None]
  - GASTROINTESTINAL MOTILITY DISORDER [None]
  - GENERAL PHYSICAL HEALTH DETERIORATION [None]
  - HAEMOGLOBIN DECREASED [None]
  - HYPERREFLEXIA [None]
  - HYPOALBUMINAEMIA [None]
  - HYPOKALAEMIA [None]
  - LAPAROTOMY [None]
  - LEUKOCYTOSIS [None]
  - MENOMETRORRHAGIA [None]
  - PERITONITIS [None]
  - PROCTALGIA [None]
  - PYREXIA [None]
  - RECTAL NEOPLASM [None]
  - UTERINE DISORDER [None]
